FAERS Safety Report 16900078 (Version 2)
Quarter: 2019Q4

REPORT INFORMATION
  Report Type: Spontaneous
  Country: AU (occurrence: AU)
  Receive Date: 20191009
  Receipt Date: 20191108
  Transmission Date: 20200122
  Serious: Yes (Other)
  Sender: FDA-Public Use
  Company Number: AU-JNJFOC-20190937106

PATIENT
  Age: 36 Year
  Sex: Male

DRUGS (7)
  1. CLOZARIL [Suspect]
     Active Substance: CLOZAPINE
     Indication: SCHIZOPHRENIA
     Route: 048
     Dates: start: 19980824, end: 20180214
  2. ATORVASTATIN [Suspect]
     Active Substance: ATORVASTATIN
     Indication: PRODUCT USED FOR UNKNOWN INDICATION
     Dosage: IN THE EVENING
     Route: 065
  3. PANTOPRAZOLE [Suspect]
     Active Substance: PANTOPRAZOLE
     Indication: PRODUCT USED FOR UNKNOWN INDICATION
     Dosage: IN EVENING
     Route: 065
  4. VALPROIC ACID. [Suspect]
     Active Substance: VALPROIC ACID
     Indication: PRODUCT USED FOR UNKNOWN INDICATION
     Route: 065
  5. PALIPERIDONE PALMITATE [Suspect]
     Active Substance: PALIPERIDONE PALMITATE
     Indication: SCHIZOPHRENIA
     Route: 030
  6. QUETIAPINE. [Suspect]
     Active Substance: QUETIAPINE
     Indication: PRODUCT USED FOR UNKNOWN INDICATION
     Route: 065
  7. CLONAZEPAM. [Suspect]
     Active Substance: CLONAZEPAM
     Indication: PRODUCT USED FOR UNKNOWN INDICATION
     Dosage: IN EVENING
     Route: 065

REACTIONS (13)
  - C-reactive protein increased [Unknown]
  - Myelocyte count increased [Unknown]
  - Off label use [Unknown]
  - Troponin increased [Recovered/Resolved]
  - Inappropriate schedule of product administration [Unknown]
  - Blast cell count increased [Unknown]
  - Mental impairment [Unknown]
  - Anion gap increased [Unknown]
  - Blood bicarbonate decreased [Unknown]
  - Blood osmolarity decreased [Unknown]
  - Gamma-glutamyltransferase increased [Not Recovered/Not Resolved]
  - Protein total increased [Unknown]
  - Blood sodium decreased [Unknown]

NARRATIVE: CASE EVENT DATE: 20190205
